FAERS Safety Report 6683202-3 (Version None)
Quarter: 2010Q2

REPORT INFORMATION
  Report Type: 
  Country: None (occurrence: None)
  Receive Date: 20100415
  Receipt Date: 20100404
  Transmission Date: 20101027
  Serious: Yes (Death, Other)
  Sender: FDA-Public Use
  Company Number: IR-GENENTECH-300287

PATIENT
  Age: 25 Year
  Sex: Female

DRUGS (2)
  1. MABTHERA [Suspect]
     Indication: RHEUMATOID ARTHRITIS
     Dosage: 1000 MG, DAYS 1+14
     Route: 042
     Dates: start: 20080101
  2. MABTHERA [Suspect]
     Dosage: 500 MG, DAYS 1+14
     Route: 042
     Dates: start: 20091001, end: 20091001

REACTIONS (4)
  - DEATH [None]
  - INTENTIONAL SELF-INJURY [None]
  - URINARY TRACT INFECTION [None]
  - VAGINAL HAEMORRHAGE [None]
